FAERS Safety Report 18006678 (Version 1)
Quarter: 2020Q3

REPORT INFORMATION
  Report Type: Spontaneous
  Country: CA (occurrence: CA)
  Receive Date: 20200710
  Receipt Date: 20200710
  Transmission Date: 20201103
  Serious: Yes (Disabling)
  Sender: FDA-Public Use
  Company Number: CA-PFIZER INC-2020262545

PATIENT
  Age: 88 Year
  Sex: Male
  Weight: 67.12 kg

DRUGS (1)
  1. IBUPROFEN. [Suspect]
     Active Substance: IBUPROFEN
     Indication: POLYARTHRITIS
     Dosage: 400 MG, 1X/DAY
     Route: 048

REACTIONS (2)
  - Presyncope [Recovered/Resolved]
  - Nausea [Recovered/Resolved]
